FAERS Safety Report 12247891 (Version 2)
Quarter: 2016Q2

REPORT INFORMATION
  Report Type: Spontaneous
  Country: US (occurrence: US)
  Receive Date: 20160408
  Receipt Date: 20160510
  Transmission Date: 20160815
  Serious: Yes (Other)
  Sender: FDA-Public Use
  Company Number: US-009507513-1604USA002444

PATIENT
  Age: 46 Year
  Sex: Female

DRUGS (2)
  1. BELSOMRA [Suspect]
     Active Substance: SUVOREXANT
     Indication: INSOMNIA
     Dosage: 15 MG, QD
     Route: 048
     Dates: start: 20160303, end: 20160404
  2. XANAX [Concomitant]
     Active Substance: ALPRAZOLAM

REACTIONS (5)
  - Paralysis [Recovered/Resolved]
  - Nightmare [Unknown]
  - Cough [Unknown]
  - Hallucination [Unknown]
  - Sleep terror [Unknown]

NARRATIVE: CASE EVENT DATE: 20160303
